FAERS Safety Report 17094072 (Version 3)
Quarter: 2019Q4

REPORT INFORMATION
  Report Type: Spontaneous
  Country: TW (occurrence: TW)
  Receive Date: 20191129
  Receipt Date: 20191226
  Transmission Date: 20200122
  Serious: Yes (Other)
  Sender: FDA-Public Use
  Company Number: TW-AMGEN-TWNSP2019193969

PATIENT
  Age: 70 Year
  Sex: Female

DRUGS (5)
  1. XGEVA [Suspect]
     Active Substance: DENOSUMAB
     Indication: BREAST CANCER METASTATIC
     Dosage: UNK, QMO
     Route: 065
     Dates: start: 2018
  2. LIPO-DOX [Concomitant]
     Active Substance: DOXORUBICIN HYDROCHLORIDE
     Indication: BREAST CANCER METASTATIC
     Dosage: UNK UNK, Q3WK
  3. GEMCITABINE. [Concomitant]
     Active Substance: GEMCITABINE
     Indication: BREAST CANCER METASTATIC
     Dosage: UNK
  4. TAXOL [Concomitant]
     Active Substance: PACLITAXEL
     Indication: BREAST CANCER METASTATIC
     Dosage: UNK
  5. FENTANYL. [Concomitant]
     Active Substance: FENTANYL
     Indication: PAIN
     Dosage: UNK
     Route: 058

REACTIONS (4)
  - Ilium fracture [Unknown]
  - Breast cancer metastatic [Unknown]
  - Arthralgia [Unknown]
  - Pelvic pain [Unknown]

NARRATIVE: CASE EVENT DATE: 2018
